FAERS Safety Report 7964593-X (Version None)
Quarter: 2011Q4

REPORT INFORMATION
  Report Type: 
  Country: None (occurrence: None)
  Receive Date: 20111208
  Receipt Date: 20111106
  Transmission Date: 20120403
  Serious: No
  Sender: FDA-Public Use
  Company Number: US-BAYER-2011-107949

PATIENT
  Sex: Female

DRUGS (4)
  1. MOTRIN [Concomitant]
  2. ALEVE (CAPLET) [Suspect]
     Indication: HEADACHE
  3. ADVIL ALLERGY SINUS [Concomitant]
  4. ALEVE (CAPLET) [Suspect]
     Indication: ARTHRITIS

REACTIONS (2)
  - HEADACHE [None]
  - NO ADVERSE EVENT [None]
